FAERS Safety Report 4950137-3 (Version None)
Quarter: 2006Q1

REPORT INFORMATION
  Report Type: 
  Country: None (occurrence: None)
  Receive Date: 20060316
  Receipt Date: 20060309
  Transmission Date: 20060701
  Serious: Yes (Other)
  Sender: FDA-Public Use
  Company Number: 2006-00906

PATIENT
  Age: 32 Year
  Sex: Female

DRUGS (4)
  1. CLORAZEPATE DIPOTASSIUM (WATSON LABORATORIES)(CLORAZEPATE DIPOTASSIUM) [Suspect]
     Indication: BIPOLAR DISORDER
     Dosage: 15 MG DAILY ORAL
     Route: 048
     Dates: start: 20011207, end: 20020707
  2. ALPRAZOLAM (WATSON LABORATORIES) (ALPRAZOLAM, ALPRAZOLAM) TABLETS [Suspect]
     Indication: ANXIETY
     Dosage: 2.5 MG DAILY ORAL
     Route: 048
     Dates: start: 20011207, end: 20020707
  3. SERTRALINE [Suspect]
     Indication: BIPOLAR DISORDER
     Dosage: 25 - 10 MG DAILY ORAL
     Route: 048
     Dates: start: 20011207, end: 20020215
  4. AQUILEA [Concomitant]

REACTIONS (1)
  - HEPATIC FIBROSIS [None]
